FAERS Safety Report 8459364-4 (Version None)
Quarter: 2012Q2

REPORT INFORMATION
  Report Type: 
  Country: None (occurrence: None)
  Receive Date: 20120622
  Receipt Date: 20120618
  Transmission Date: 20120825
  Serious: Yes (Death)
  Sender: FDA-Public Use
  Company Number: US-JNJFOC-20120407053

PATIENT
  Sex: Female
  Weight: 20.87 kg

DRUGS (4)
  1. ZYRTEC [Suspect]
     Indication: INFLUENZA LIKE ILLNESS
     Route: 065
  2. ZYRTEC [Suspect]
     Route: 065
  3. ACETAMINOPHEN [Concomitant]
     Route: 065
  4. DELSYM [Suspect]
     Indication: INFLUENZA LIKE ILLNESS
     Route: 065

REACTIONS (6)
  - WRONG DRUG ADMINISTERED [None]
  - ACCIDENTAL OVERDOSE [None]
  - TOXICITY TO VARIOUS AGENTS [None]
  - PAIN IN EXTREMITY [None]
  - MUSCLE SPASMS [None]
  - OFF LABEL USE [None]
